FAERS Safety Report 9051027 (Version 2)
Quarter: 2013Q4

REPORT INFORMATION
  Report Type: Spontaneous
  Country: US (occurrence: US)
  Receive Date: 20130205
  Receipt Date: 20131120
  Transmission Date: 20140711
  Serious: Yes (Death, Life-Threatening, Other)
  Sender: FDA-Public Use
  Company Number: US-ROXANE LABORATORIES, INC.-2013-RO-00207RO

PATIENT
  Age: 79 Year
  Sex: Male

DRUGS (7)
  1. CLOPIDOGREL [Suspect]
     Indication: ATRIAL FIBRILLATION
     Dosage: 75 MG
  2. CLOPIDOGREL [Suspect]
     Indication: CORONARY ARTERY DISEASE
  3. DABIGATRAN [Suspect]
     Indication: ATRIAL FIBRILLATION
     Dosage: 300 MG
  4. DABIGATRAN [Suspect]
     Indication: CORONARY ARTERY DISEASE
  5. ASPIRIN [Suspect]
     Indication: ATRIAL FIBRILLATION
     Dosage: 81 MG
  6. ASPIRIN [Suspect]
     Indication: CORONARY ARTERY DISEASE
  7. SOTALOL [Suspect]

REACTIONS (8)
  - Cardiac arrest [Fatal]
  - Bradycardia [Fatal]
  - Exsanguination [Fatal]
  - Pulseless electrical activity [Recovered/Resolved]
  - Epistaxis [Unknown]
  - Melaena [Unknown]
  - Rectal haemorrhage [Unknown]
  - Chest pain [Unknown]
